FAERS Safety Report 15976247 (Version 1)
Quarter: 2019Q1

REPORT INFORMATION
  Report Type: Spontaneous
  Country: US (occurrence: US)
  Receive Date: 20190218
  Receipt Date: 20190218
  Transmission Date: 20190418
  Serious: No
  Sender: FDA-Public Use
  Company Number: US-PFIZER INC-2019064215

PATIENT
  Age: 64 Year
  Sex: Male
  Weight: 81.65 kg

DRUGS (1)
  1. CELECOXIB. [Suspect]
     Active Substance: CELECOXIB
     Indication: ANKYLOSING SPONDYLITIS
     Dosage: 200 MG, DAILY
     Route: 048

REACTIONS (3)
  - Malaise [Unknown]
  - Product dispensing error [Unknown]
  - Drug ineffective [Unknown]
